FAERS Safety Report 20771432 (Version 1)
Quarter: 2022Q2

REPORT INFORMATION
  Report Type: Report from Study
  Country: US (occurrence: US)
  Receive Date: 20220429
  Receipt Date: 20220429
  Transmission Date: 20220721
  Serious: Yes (Hospitalization)
  Sender: FDA-Public Use
  Company Number: US-BAUSCH-BL-2022-010675

PATIENT
  Age: 59 Year
  Sex: Male
  Weight: 89.892 kg

DRUGS (12)
  1. XIFAXAN [Suspect]
     Active Substance: RIFAXIMIN
     Indication: Hepatic encephalopathy
     Dosage: TAKE 1 TABLET BY ORAL ROUTE 2 TIMES PER DAY
     Route: 048
  2. PANTOPRAZOLE [Concomitant]
     Active Substance: PANTOPRAZOLE
     Indication: Product used for unknown indication
     Dosage: DELAYED RELEASE (ENTERIC COATED), 1 TAB BY ORAL ROUTE 2 TIMES PER DAY
     Route: 048
  3. SPIRONOLACTONE [Concomitant]
     Active Substance: SPIRONOLACTONE
     Indication: Ascites
     Dosage: TAKE 1 TAB BY ORAL ROUTE ONCE DAILY
     Route: 048
  4. FUROSEMIDE [Concomitant]
     Active Substance: FUROSEMIDE
     Indication: Ascites
     Dosage: TAKE 1 TAB BY ORAL ROUTE ONCE DAILY
     Route: 048
  5. THIAMINE HYDROCHLORIDE [Concomitant]
     Active Substance: THIAMINE HYDROCHLORIDE
     Indication: Product used for unknown indication
     Dosage: THIAMINE HCL (VITAMIN B1)
     Route: 048
  6. VITAMIN D3 [Concomitant]
     Active Substance: CHOLECALCIFEROL
     Indication: Product used for unknown indication
     Dosage: 50,000 U
  7. LACTULOSE [Concomitant]
     Active Substance: LACTULOSE
     Indication: Hepatic encephalopathy
     Dosage: 20 GM/ 30ML ORAL SOLUTION. INSERT 300 MILLILITRES (200 GM) BY RECTAL ROUTE EVERY 4 HOURS
     Route: 054
  8. MAGNESIUM OXIDE [Concomitant]
     Active Substance: MAGNESIUM OXIDE
     Indication: Product used for unknown indication
  9. DRONABINOL [Concomitant]
     Active Substance: DRONABINOL
     Indication: Product used for unknown indication
     Dosage: TAKE 1 CAPSULE BY ORAL ROUTE 2 TIMES PER DAY
     Route: 048
  10. KRILL OIL [Concomitant]
     Active Substance: DIETARY SUPPLEMENT\KRILL OIL
     Indication: Product used for unknown indication
     Route: 048
  11. MELATONIN [Concomitant]
     Active Substance: MELATONIN
     Indication: Product used for unknown indication
     Route: 048
  12. MIDODRINE [Concomitant]
     Active Substance: MIDODRINE
     Indication: Hypotension
     Dosage: TAKE 15 MG BY ORAL ROUTE 3 TIMES PER DAY
     Route: 048

REACTIONS (6)
  - Hypervolaemia [Not Recovered/Not Resolved]
  - Acute kidney injury [Unknown]
  - Illness [Unknown]
  - Abdominal distension [Unknown]
  - Oedema peripheral [Unknown]
  - Depression [Unknown]
